FAERS Safety Report 7328018-X (Version None)
Quarter: 2011Q1

REPORT INFORMATION
  Report Type: 
  Country: None (occurrence: None)
  Receive Date: 20110303
  Receipt Date: 20110216
  Transmission Date: 20110831
  Serious: Yes (Other)
  Sender: FDA-Public Use
  Company Number: IL-CELGENEUS-082-50794-11021895

PATIENT
  Age: 60 Year
  Sex: Male

DRUGS (4)
  1. VIDAZA [Suspect]
     Dosage: 150 MILLIGRAM
     Route: 065
  2. DESFERAL [Concomitant]
     Route: 065
  3. VIDAZA [Suspect]
     Dosage: 150 MILLIGRAM
     Route: 065
     Dates: start: 20101025, end: 20101031
  4. VIDAZA [Suspect]
     Dosage: 150 MILLIGRAM
     Route: 065

REACTIONS (2)
  - SUPRAVENTRICULAR TACHYCARDIA [None]
  - RIGHT VENTRICULAR FAILURE [None]
